FAERS Safety Report 4498431-7 (Version None)
Quarter: 2004Q4

REPORT INFORMATION
  Report Type: 
  Country: None (occurrence: None)
  Receive Date: 20041105
  Receipt Date: 20041020
  Transmission Date: 20050328
  Serious: Yes (Life-Threatening, Hospitalization)
  Sender: FDA-Public Use
  Company Number: DSA_25229_2004

PATIENT
  Age: 73 Year
  Sex: Female

DRUGS (8)
  1. ENALAPRIL MALEATE [Suspect]
     Indication: HYPERTENSION
     Dosage: 7.5 MG Q DAY PO
     Route: 048
     Dates: start: 20030101
  2. SPIRONOLACTONE [Suspect]
     Indication: HYPERTENSION
     Dosage: 25 MG QD PO
     Route: 048
     Dates: start: 20040101, end: 20040415
  3. AMIODARONE HYDROCHLORIDE [Concomitant]
  4. DIGITOXIN TAB [Concomitant]
  5. FUROSEMIDE [Concomitant]
  6. ACTRAPHANE HM [Concomitant]
  7. METOPROLOL [Concomitant]
  8. FALITHROM  FAHLBERG [Concomitant]

REACTIONS (14)
  - ATRIAL FIBRILLATION [None]
  - BLOOD CREATININE INCREASED [None]
  - BLOOD PRESSURE SYSTOLIC DECREASED [None]
  - BRADYARRHYTHMIA [None]
  - BUNDLE BRANCH BLOCK LEFT [None]
  - DIALYSIS [None]
  - DILATATION VENTRICULAR [None]
  - DIZZINESS [None]
  - DRUG INTERACTION [None]
  - HYPERKALAEMIA [None]
  - RENAL FAILURE [None]
  - VENTRICULAR FAILURE [None]
  - VENTRICULAR HYPERTROPHY [None]
  - VOMITING [None]
